FAERS Safety Report 14559400 (Version 1)
Quarter: 2018Q1

REPORT INFORMATION
  Report Type: Spontaneous
  Country: GB (occurrence: GB)
  Receive Date: 20180221
  Receipt Date: 20180221
  Transmission Date: 20180509
  Serious: Yes (Other)
  Sender: FDA-Public Use
  Company Number: GB-TEVA-2018-GB-859668

PATIENT
  Age: 81 Year
  Sex: Female
  Weight: 46 kg

DRUGS (12)
  1. CALCIUM CARBONATE. [Concomitant]
     Active Substance: CALCIUM CARBONATE
     Dosage: 1 DOSAGE FORMS DAILY;
     Route: 065
     Dates: start: 20170424
  2. BIMATOPROST. [Concomitant]
     Active Substance: BIMATOPROST
     Dosage: 1 GTT DAILY; BOTH EYES AT NIGHT
     Route: 047
     Dates: start: 20170424
  3. BRINZOLAMIDE [Concomitant]
     Active Substance: BRINZOLAMIDE
     Dosage: 2 GTT DAILY; TO BOTH EYES
     Route: 047
     Dates: start: 20170424
  4. CLINDAMYCIN. [Concomitant]
     Active Substance: CLINDAMYCIN
     Dosage: 4 DOSAGE FORMS DAILY;
     Route: 065
     Dates: start: 20171110, end: 20171117
  5. HYLO-FORTE [Concomitant]
     Active Substance: HYALURONATE SODIUM
     Dosage: 3 DOSAGE FORMS DAILY; TO BOTH EYES
     Route: 047
     Dates: start: 20170424
  6. ACETYLSALICYLIC ACID [Concomitant]
     Active Substance: ASPIRIN
     Dosage: 1 DOSAGE FORMS DAILY;
     Route: 065
     Dates: start: 20170424
  7. OMEPRAZOLE. [Concomitant]
     Active Substance: OMEPRAZOLE
     Dosage: 1 DOSAGE FORMS DAILY;
     Route: 065
     Dates: start: 20170424
  8. GLYCERYL TRINITRATE [Concomitant]
     Active Substance: NITROGLYCERIN
     Indication: CHEST PAIN
     Dosage: 1 DOSAGE FORMS DAILY; ONE PUFF FOR CHEST PAIN. REPEAT AFTER 5 MINUTES
     Route: 065
     Dates: start: 20170424
  9. CLARITHROMYCIN. [Concomitant]
     Active Substance: CLARITHROMYCIN
     Dosage: 2 DOSAGE FORMS DAILY;
     Route: 065
     Dates: start: 20171101, end: 20171108
  10. LEVOTHYROXINE. [Concomitant]
     Active Substance: LEVOTHYROXINE
     Dosage: 1 DOSAGE FORMS DAILY; EACH MORNING
     Route: 065
     Dates: start: 20170424
  11. RIVASTIGMINE. [Suspect]
     Active Substance: RIVASTIGMINE
     Route: 065
     Dates: start: 20170502
  12. ATORVASTATIN [Concomitant]
     Active Substance: ATORVASTATIN
     Dosage: 1 DOSAGE FORMS DAILY;
     Route: 065
     Dates: start: 20170424

REACTIONS (1)
  - Rash [Recovered/Resolved]

NARRATIVE: CASE EVENT DATE: 20171208
